FAERS Safety Report 18208235 (Version 1)
Quarter: 2020Q3

REPORT INFORMATION
  Report Type: Spontaneous
  Country: US (occurrence: US)
  Receive Date: 20200828
  Receipt Date: 20200828
  Transmission Date: 20201103
  Serious: Yes (Other)
  Sender: FDA-Public Use
  Company Number: US-GLENMARK PHARMACEUTICALS-2016GMK024978

PATIENT
  Age: 5 Decade
  Sex: Male

DRUGS (7)
  1. PRAVASTATIN SODIUM. [Suspect]
     Active Substance: PRAVASTATIN SODIUM
     Indication: LOW DENSITY LIPOPROTEIN INCREASED
     Dosage: 40 MILLIGRAM
     Route: 065
  2. ROSUVASTATIN CALCIUM. [Suspect]
     Active Substance: ROSUVASTATIN CALCIUM
     Indication: LOW DENSITY LIPOPROTEIN INCREASED
     Dosage: UNK (DOSE REDUCED TO 1 MG)
     Route: 065
  3. ATORVASTATIN [Suspect]
     Active Substance: ATORVASTATIN
     Dosage: 1 MG, UNK
     Route: 065
  4. SIMVASTATIN. [Suspect]
     Active Substance: SIMVASTATIN
     Indication: LOW DENSITY LIPOPROTEIN INCREASED
     Dosage: UNK (DOSE REDUCED TO 1 MG)
     Route: 065
  5. ROSUVASTATIN CALCIUM. [Suspect]
     Active Substance: ROSUVASTATIN CALCIUM
     Dosage: 1 MG, UNK
     Route: 065
  6. SIMVASTATIN. [Suspect]
     Active Substance: SIMVASTATIN
     Dosage: 1 MG, UNK
     Route: 065
  7. ATORVASTATIN [Suspect]
     Active Substance: ATORVASTATIN
     Indication: LOW DENSITY LIPOPROTEIN INCREASED
     Dosage: UNK (DOSE REDUCED TO 1 MG)
     Route: 065

REACTIONS (11)
  - Confusional state [Unknown]
  - Cognitive disorder [Unknown]
  - Mood altered [Unknown]
  - Irritability [Recovered/Resolved]
  - Violence-related symptom [Unknown]
  - Plantar fasciitis [Recovered/Resolved]
  - Aggression [Recovered/Resolved]
  - Myalgia [Unknown]
  - Dyspnoea [Recovered/Resolved]
  - Impatience [Unknown]
  - Anger [Recovered/Resolved]
